FAERS Safety Report 12444034 (Version 1)
Quarter: 2016Q2

REPORT INFORMATION
  Report Type: Spontaneous
  Country: US (occurrence: US)
  Receive Date: 20160607
  Receipt Date: 20160607
  Transmission Date: 20160815
  Serious: No
  Sender: FDA-Public Use
  Company Number: US-SA-2016SA079794

PATIENT
  Age: 65 Year
  Sex: Male

DRUGS (6)
  1. TOUJEO [Suspect]
     Active Substance: INSULIN GLARGINE
     Indication: DIABETES MELLITUS
     Dosage: DOSE: 6 TO 10 UNITS
     Route: 065
  2. TOUJEO [Suspect]
     Active Substance: INSULIN GLARGINE
     Indication: DIABETES MELLITUS
     Dosage: DOSE:24 UNIT(S)
     Route: 065
  3. SOLOSTAR [Concomitant]
     Active Substance: DEVICE
     Route: 065
  4. HUMALOG [Concomitant]
     Active Substance: INSULIN LISPRO
  5. SOLOSTAR [Concomitant]
     Active Substance: DEVICE
     Dosage: DOSE:24 UNIT(S)
     Route: 065
  6. NOVOLOG [Concomitant]
     Active Substance: INSULIN ASPART

REACTIONS (8)
  - Intervertebral disc protrusion [Unknown]
  - Rotator cuff syndrome [Unknown]
  - Tendonitis [Unknown]
  - Pain [Unknown]
  - Product use issue [Unknown]
  - Fall [Unknown]
  - Blood glucose increased [Unknown]
  - Arthropathy [Unknown]

NARRATIVE: CASE EVENT DATE: 201602
